FAERS Safety Report 11789929 (Version 1)
Quarter: 2015Q4

REPORT INFORMATION
  Report Type: Spontaneous
  Country: US (occurrence: None)
  Receive Date: 20151130
  Receipt Date: 20151130
  Transmission Date: 20160305
  Serious: No
  Sender: FDA-Public Use
  Company Number: None

PATIENT
  Age: 58 Year
  Sex: Female

DRUGS (1)
  1. LIDOCAINE PATCH 5% MYLAN [Suspect]
     Active Substance: LIDOCAINE
     Indication: PAIN
     Route: 062
     Dates: start: 20151019, end: 20151101

REACTIONS (5)
  - Complication of device removal [None]
  - Device physical property issue [None]
  - Product adhesion issue [None]
  - Pain [None]
  - Discomfort [None]

NARRATIVE: CASE EVENT DATE: 20151019
